FAERS Safety Report 6984415-3 (Version None)
Quarter: 2010Q3

REPORT INFORMATION
  Report Type: 
  Country: None (occurrence: None)
  Receive Date: 20100915
  Receipt Date: 20100909
  Transmission Date: 20110219
  Serious: Yes (Other)
  Sender: FDA-Public Use
  Company Number: CHPA2010US14482

PATIENT
  Sex: Female

DRUGS (4)
  1. PRIVATE LABEL (NCH) [Suspect]
     Indication: SMOKING CESSATION THERAPY
     Dosage: 21 MG, QD
     Route: 062
     Dates: start: 20100101, end: 20100909
  2. PRIVATE LABEL (NCH) [Suspect]
     Dosage: 14 MG, QD
     Route: 062
     Dates: start: 20100101, end: 20100101
  3. PRIVATE LABEL (NCH) [Suspect]
     Dosage: 7 MG, QD
     Route: 062
     Dates: start: 20100101, end: 20100101
  4. PRIVATE LABEL (NCH) [Suspect]
     Dosage: UNK. UNK
     Route: 062
     Dates: start: 20100701, end: 20100701

REACTIONS (4)
  - ANGIOGRAM [None]
  - INAPPROPRIATE SCHEDULE OF DRUG ADMINISTRATION [None]
  - INCREASED APPETITE [None]
  - STENT PLACEMENT [None]
